FAERS Safety Report 14727454 (Version 2)
Quarter: 2018Q2

REPORT INFORMATION
  Report Type: Spontaneous
  Country: US (occurrence: US)
  Receive Date: 20180406
  Receipt Date: 20180504
  Transmission Date: 20180711
  Serious: No
  Sender: FDA-Public Use
  Company Number: US-ASTRAZENECA-2018SE30326

PATIENT
  Age: 68 Year
  Sex: Female

DRUGS (1)
  1. PULMICORT FLEXHALER [Suspect]
     Active Substance: BUDESONIDE
     Indication: ASTHMA
     Route: 055
     Dates: start: 201801

REACTIONS (3)
  - Drug dose omission [Unknown]
  - Condition aggravated [Unknown]
  - Device issue [Unknown]

NARRATIVE: CASE EVENT DATE: 2018
